FAERS Safety Report 19435973 (Version 1)
Quarter: 2021Q2

REPORT INFORMATION
  Report Type: Spontaneous
  Country: NL (occurrence: NL)
  Receive Date: 20210618
  Receipt Date: 20210618
  Transmission Date: 20210717
  Serious: Yes (Other)
  Sender: FDA-Public Use
  Company Number: NL-ACCORD-228569

PATIENT
  Age: 50 Year
  Sex: Male
  Weight: 84 kg

DRUGS (6)
  1. ATORVASTATIN/ATORVASTATIN CALCIUM [Suspect]
     Active Substance: ATORVASTATIN CALCIUM
     Indication: HYPERCHOLESTEROLAEMIA
     Dosage: TABLET, 40 MG (MILLIGRAM)
     Dates: start: 20160316, end: 20201127
  2. PANTOPRAZOLE [Concomitant]
     Active Substance: PANTOPRAZOLE
     Dosage: 40MG
  3. EZETIMIBE. [Concomitant]
     Active Substance: EZETIMIBE
     Dosage: TABLET, 10 MG (MILLIGRAM)
  4. CARBASALATE [Concomitant]
     Active Substance: CARBASPIRIN
     Dosage: 100 MG
  5. PERINDOPRIL [Concomitant]
     Active Substance: PERINDOPRIL
     Dosage: 2MG
  6. METOPROLOL. [Concomitant]
     Active Substance: METOPROLOL
     Dosage: TABLET, 50 MG (MILLIGRAM)

REACTIONS (3)
  - Hepatic enzyme increased [Recovering/Resolving]
  - Rhabdomyolysis [Recovering/Resolving]
  - Polymyositis [Recovering/Resolving]

NARRATIVE: CASE EVENT DATE: 20200301
